FAERS Safety Report 19088068 (Version 1)
Quarter: 2021Q2

REPORT INFORMATION
  Report Type: Spontaneous
  Country: SI (occurrence: SI)
  Receive Date: 20210402
  Receipt Date: 20210402
  Transmission Date: 20210717
  Serious: Yes (Other)
  Sender: FDA-Public Use
  Company Number: SI-ASTRAZENECA-2021A209991

PATIENT
  Age: 66 Year
  Sex: Male

DRUGS (3)
  1. STATIN [NYSTATIN] [Suspect]
     Active Substance: NYSTATIN
     Route: 065
  2. PPI [OMEPRAZOLE] [Suspect]
     Active Substance: OMEPRAZOLE
     Route: 065
  3. ASPIRIN. [Suspect]
     Active Substance: ASPIRIN
     Route: 065

REACTIONS (7)
  - Peripheral arterial occlusive disease [Unknown]
  - Cardiac failure [Unknown]
  - Hypertension [Unknown]
  - Diabetes mellitus [Unknown]
  - Myocardial infarction [Unknown]
  - Myocardial ischaemia [Unknown]
  - Intermittent claudication [Unknown]
